FAERS Safety Report 22088439 (Version 2)
Quarter: 2023Q2

REPORT INFORMATION
  Report Type: Spontaneous
  Country: US (occurrence: US)
  Receive Date: 20230313
  Receipt Date: 20230605
  Transmission Date: 20230721
  Serious: No
  Sender: FDA-Public Use
  Company Number: US-PHARMAESSENTIA CORPORATION-US-2023-PEC-001010

PATIENT

DRUGS (1)
  1. BESREMI [Suspect]
     Active Substance: ROPEGINTERFERON ALFA-2B-NJFT
     Indication: Polycythaemia vera
     Dosage: 250 MCG, Q2W
     Route: 058

REACTIONS (3)
  - Platelet count increased [Recovered/Resolved]
  - Haematocrit increased [Recovering/Resolving]
  - Depressed mood [Not Recovered/Not Resolved]
